FAERS Safety Report 5472100-9 (Version None)
Quarter: 2007Q3

REPORT INFORMATION
  Report Type: 
  Country: None (occurrence: None)
  Receive Date: 20070925
  Receipt Date: 20070829
  Transmission Date: 20080115
  Serious: Yes (Other)
  Sender: FDA-Public Use
  Company Number: 17495

PATIENT
  Age: 82 Year
  Sex: Female

DRUGS (1)
  1. CARBOPLATIN [Suspect]
     Indication: UTERINE CANCER
     Dosage: 150 MG FREQ
     Dates: start: 20070601, end: 20070820

REACTIONS (1)
  - ANAPHYLACTIC REACTION [None]
